FAERS Safety Report 6541764-0 (Version None)
Quarter: 2010Q1

REPORT INFORMATION
  Report Type: 
  Country: None (occurrence: None)
  Receive Date: 20100119
  Receipt Date: 20100113
  Transmission Date: 20100710
  Serious: Yes (Other)
  Sender: FDA-Public Use
  Company Number: MA-ASTRAZENECA-2010SE01609

PATIENT
  Sex: Female
  Weight: 52 kg

DRUGS (1)
  1. CRESTOR [Suspect]
     Indication: HYPERCHOLESTEROLAEMIA
     Route: 048
     Dates: start: 20090605, end: 20090617

REACTIONS (2)
  - MYALGIA [None]
  - PAIN IN EXTREMITY [None]
